FAERS Safety Report 11778810 (Version 2)
Quarter: 2016Q1

REPORT INFORMATION
  Report Type: Spontaneous
  Country: VE (occurrence: VE)
  Receive Date: 20151125
  Receipt Date: 20160115
  Transmission Date: 20160525
  Serious: Yes (Other)
  Sender: FDA-Public Use
  Company Number: PHHY2015VE154496

PATIENT
  Sex: Male

DRUGS (1)
  1. TRILEPTAL [Suspect]
     Active Substance: OXCARBAZEPINE
     Indication: EPILEPSY
     Dosage: 8 CC (TRILEPTAL 6%/ 100 ML), QD
     Route: 048
     Dates: start: 2014, end: 2015

REACTIONS (2)
  - Partial seizures [Not Recovered/Not Resolved]
  - General physical health deterioration [Not Recovered/Not Resolved]
